FAERS Safety Report 4345985-7 (Version None)
Quarter: 2004Q2

REPORT INFORMATION
  Report Type: 
  Country: None (occurrence: None)
  Receive Date: 20040423
  Receipt Date: 20040414
  Transmission Date: 20050107
  Serious: Yes (Hospitalization)
  Sender: FDA-Public Use
  Company Number: 2004025528

PATIENT
  Sex: Male

DRUGS (1)
  1. LISTERINE ANTISEPTIC MOUTHWASH (EUCALYPTOL, MENTHOL, METHYL SALICYLATE [Suspect]
     Indication: INTENTIONAL OVERDOSE
     Dosage: OVER 7 LITERS OVER THE COURSE OF 2 DAYS, ORAL
     Route: 048
     Dates: start: 20040413, end: 20040414

REACTIONS (5)
  - BLOOD PRESSURE INCREASED [None]
  - DELIRIUM [None]
  - HEART RATE INCREASED [None]
  - HYPERHIDROSIS [None]
  - MEDICATION ERROR [None]
